FAERS Safety Report 9575151 (Version 1)
Quarter: 2013Q4

REPORT INFORMATION
  Report Type: Spontaneous
  Country: JP (occurrence: JP)
  Receive Date: 20131001
  Receipt Date: 20131001
  Transmission Date: 20140711
  Serious: Yes (Other)
  Sender: FDA-Public Use
  Company Number: PHHY2013JP108635

PATIENT
  Sex: Female
  Weight: 30 kg

DRUGS (12)
  1. RIFAMPICIN SANDOZ [Suspect]
     Indication: ATYPICAL MYCOBACTERIAL INFECTION
     Dosage: 300 MG, DAILY
     Route: 048
     Dates: start: 20130411
  2. VASOLAN [Concomitant]
     Indication: ARRHYTHMIA
     Dosage: 20 MG, UNK
     Route: 042
     Dates: start: 20130417
  3. VASOLAN [Concomitant]
     Dosage: 40 MG, TID
     Route: 048
  4. MUCOSOLATE [Concomitant]
     Route: 048
  5. RESPLEN [Concomitant]
     Route: 048
  6. CLARITH [Concomitant]
     Indication: ATYPICAL MYCOBACTERIAL INFECTION
     Dates: start: 20130411
  7. EBUTOL [Concomitant]
     Indication: ATYPICAL MYCOBACTERIAL INFECTION
     Dates: start: 20130411
  8. SEDAGASTON [Concomitant]
     Route: 048
  9. CEFOTAX [Concomitant]
     Route: 048
     Dates: start: 20130402, end: 20130412
  10. MUCOSTA [Concomitant]
     Dates: start: 20130411
  11. CALONAL [Concomitant]
     Route: 048
     Dates: start: 20130403, end: 20130407
  12. DIHYDROCODEINE PHOSPHATE [Concomitant]
     Route: 048
     Dates: start: 20130411, end: 20130416

REACTIONS (1)
  - Tachycardia paroxysmal [Recovered/Resolved]
